FAERS Safety Report 5047528-1 (Version None)
Quarter: 2006Q3

REPORT INFORMATION
  Report Type: 
  Country: None (occurrence: None)
  Receive Date: 20060703
  Receipt Date: 20060626
  Transmission Date: 20061208
  Serious: Yes (Hospitalization)
  Sender: FDA-Public Use
  Company Number: 2006BI008040

PATIENT
  Age: 47 Year
  Sex: Female

DRUGS (22)
  1. AVONEX [Suspect]
     Indication: MULTIPLE SCLEROSIS
     Dosage: 30 U G; QW; IM
     Route: 030
     Dates: start: 19971101
  2. AVONEX [Suspect]
     Indication: MULTIPLE SCLEROSIS
     Dosage: 30 UG; QW; IM
     Route: 030
  3. XANAX [Concomitant]
  4. BUSPAR [Concomitant]
  5. VALIUM [Concomitant]
  6. CELEBREX [Concomitant]
  7. CARDURA [Concomitant]
  8. ZANTAC [Concomitant]
  9. PREVACID [Concomitant]
  10. REGLAN [Concomitant]
  11. NEURONTIN [Concomitant]
  12. AMBIEN [Concomitant]
  13. PAXIL [Concomitant]
  14. LIMBITROL [Concomitant]
  15. ZYRTEC [Concomitant]
  16. TRIMETHOPRIM [Concomitant]
  17. MED PRO X [Concomitant]
  18. ESTRADIAL [Concomitant]
  19. LIPITOR [Concomitant]
  20. ACTONEL [Concomitant]
  21. PHENERGAN HCL [Concomitant]
  22. COLACE [Concomitant]

REACTIONS (2)
  - HIP ARTHROPLASTY [None]
  - SHOULDER ARTHROPLASTY [None]
